FAERS Safety Report 8876550 (Version 4)
Quarter: 2012Q4

REPORT INFORMATION
  Report Type: Report from Study
  Country: DE (occurrence: DE)
  Receive Date: 20121030
  Receipt Date: 20121206
  Transmission Date: 20130627
  Serious: Yes (Hospitalization)
  Sender: FDA-Public Use
  Company Number: DE-ROCHE-1146331

PATIENT
  Age: 69 Year
  Sex: Female
  Weight: 73 kg

DRUGS (8)
  1. TRASTUZUMAB [Suspect]
     Indication: BREAST CANCER
     Dosage: last dose prior to SAE on 05/Nov/2012
     Route: 042
     Dates: start: 20120806
  2. PACLITAXEL [Suspect]
     Indication: BREAST CANCER
     Dosage: last dose prior to SAE on 15/Oct/2012
     Route: 042
     Dates: start: 20120806, end: 20121015
  3. KALINOR BRAUSE [Concomitant]
     Route: 065
     Dates: start: 20121015
  4. OMEPRAZOLE [Concomitant]
     Route: 065
     Dates: start: 20120725
  5. TORASEMID [Concomitant]
     Route: 065
     Dates: start: 20121015
  6. TROMCARDIN [Concomitant]
     Route: 065
     Dates: start: 20120927
  7. ACCUZIDE [Concomitant]
     Route: 065
     Dates: start: 20020630
  8. PERTUZUMAB [Suspect]
     Indication: BREAST CANCER
     Dosage: last dose prir to SAE on 15/Oct/2012
     Route: 042
     Dates: start: 20120806

REACTIONS (2)
  - Hypertensive crisis [Recovered/Resolved]
  - Hypertensive crisis [Recovered/Resolved]
